FAERS Safety Report 6694448-2 (Version None)
Quarter: 2010Q2

REPORT INFORMATION
  Report Type: 
  Country: None (occurrence: None)
  Receive Date: 20100420
  Receipt Date: 20100412
  Transmission Date: 20101027
  Serious: Yes (Hospitalization)
  Sender: FDA-Public Use
  Company Number: 2010EU000991

PATIENT
  Sex: Female

DRUGS (6)
  1. VESICARE [Suspect]
     Indication: INCONTINENCE
     Dosage: 10 MG, UID/QD, ORAL, 5 MG, UID/QD, ORAL
     Route: 048
     Dates: start: 20090114
  2. LEVOTHYROXINE SODIUM [Concomitant]
  3. COD LIVER OIL FORTIFIED TAB [Concomitant]
  4. EVENING PRIMROSE OIL (GAMOLENIC ACID) [Concomitant]
  5. LORATADINE [Concomitant]
  6. OMEPRAZOLE [Concomitant]

REACTIONS (9)
  - ABDOMINAL DISCOMFORT [None]
  - ASTHENIA [None]
  - DRY MOUTH [None]
  - EPINEPHRINE INCREASED [None]
  - GASTROOESOPHAGEAL REFLUX DISEASE [None]
  - MALAISE [None]
  - NAUSEA [None]
  - THROAT TIGHTNESS [None]
  - TONGUE DRY [None]
